FAERS Safety Report 5738600-9 (Version None)
Quarter: 2008Q2

REPORT INFORMATION
  Report Type: 
  Country: None (occurrence: None)
  Receive Date: 20080515
  Receipt Date: 20080409
  Transmission Date: 20081010
  Serious: No
  Sender: FDA-Public Use
  Company Number: US-BAYER-200715489NA

PATIENT
  Age: 81 Year
  Sex: Female
  Weight: 62 kg

DRUGS (12)
  1. CAMPATH [Suspect]
     Indication: CHRONIC LYMPHOCYTIC LEUKAEMIA
     Dosage: TOTAL DAILY DOSE: 3 MG
     Route: 042
     Dates: start: 20071029, end: 20071029
  2. CAMPATH [Suspect]
     Dosage: TOTAL DAILY DOSE: 3 MG
     Route: 042
     Dates: start: 20071030, end: 20071030
  3. CAMPATH [Suspect]
     Dosage: TOTAL DAILY DOSE: 10 MG
     Route: 042
     Dates: start: 20071031, end: 20071031
  4. CAMPATH [Suspect]
     Dosage: TOTAL DAILY DOSE: 10 MG
     Route: 042
     Dates: start: 20071101, end: 20071101
  5. CAMPATH [Suspect]
     Dosage: TOTAL DAILY DOSE: 30 MG
     Route: 042
     Dates: start: 20071102, end: 20071102
  6. CAMPATH [Suspect]
     Dosage: TOTAL DAILY DOSE: 30 MG
     Route: 042
     Dates: start: 20071105, end: 20071221
  7. BENADRYL [Concomitant]
     Indication: PREMEDICATION
     Route: 042
  8. SOLU-CORTEF [Concomitant]
     Indication: PREMEDICATION
     Route: 042
  9. FAMVIR [Concomitant]
     Indication: INFECTION PROPHYLAXIS
     Dosage: TOTAL DAILY DOSE: 500 MG
     Route: 048
     Dates: start: 20071023
  10. BACTRIM DS [Concomitant]
     Indication: INFECTION PROPHYLAXIS
     Route: 048
     Dates: start: 20071023
  11. FLUCONAZOLE [Concomitant]
     Indication: INFECTION PROPHYLAXIS
     Route: 048
     Dates: start: 20071023
  12. LASIX [Concomitant]
     Indication: OEDEMA
     Dosage: AS USED: 20 MG
     Dates: start: 20071210

REACTIONS (2)
  - BLOOD BILIRUBIN INCREASED [None]
  - LIVER FUNCTION TEST ABNORMAL [None]
